FAERS Safety Report 9176403 (Version 1)
Quarter: 2013Q1

REPORT INFORMATION
  Report Type: Spontaneous
  Country: CA (occurrence: CA)
  Receive Date: 20130321
  Receipt Date: 20130321
  Transmission Date: 20140127
  Serious: Yes (Other)
  Sender: FDA-Public Use
  Company Number: CA-AMGEN-CANSP2013017245

PATIENT
  Age: 72 Year
  Sex: Female
  Weight: 62.73 kg

DRUGS (1)
  1. PROLIA [Suspect]
     Indication: OSTEOPOROSIS
     Dosage: 60 MG, UNK
     Dates: start: 20110923

REACTIONS (6)
  - Polyp [Unknown]
  - Sciatic nerve injury [Unknown]
  - Eye infection [Unknown]
  - Abdominal pain [Unknown]
  - Arthralgia [Unknown]
  - Local swelling [Unknown]
